FAERS Safety Report 5191271-5 (Version None)
Quarter: 2006Q4

REPORT INFORMATION
  Report Type: 
  Country: None (occurrence: None)
  Receive Date: 20061218
  Receipt Date: 20061201
  Transmission Date: 20070319
  Serious: Yes (Life-Threatening, Hospitalization)
  Sender: FDA-Public Use
  Company Number: 32445

PATIENT
  Age: 44 Year
  Sex: Male

DRUGS (2)
  1. OLOPATADINE HCL [Suspect]
     Indication: CONJUNCTIVITIS ALLERGIC
     Dosage: EYE DROPS, SOLUTION OU QD OPHT OPHTHALMIC
     Route: 047
     Dates: end: 20050727
  2. TROPICAMIDE [Suspect]
     Indication: OPHTHALMOLOGICAL EXAMINATION
     Dosage: EYE DROPS, SOLUTION OPHT
     Route: 047
     Dates: start: 20050727, end: 20050727

REACTIONS (8)
  - ARRHYTHMIA [None]
  - BLOOD PRESSURE DECREASED [None]
  - BRADYCARDIA [None]
  - CARDIAC ARREST [None]
  - CIRCULATORY COLLAPSE [None]
  - DIZZINESS [None]
  - MALAISE [None]
  - PSYCHOTIC DISORDER [None]
